FAERS Safety Report 18194504 (Version 4)
Quarter: 2020Q4

REPORT INFORMATION
  Report Type: Spontaneous
  Country: US (occurrence: US)
  Receive Date: 20200825
  Receipt Date: 20201123
  Transmission Date: 20210113
  Serious: Yes (Other)
  Sender: FDA-Public Use
  Company Number: NVSC2020US234873

PATIENT
  Age: 27 Year
  Sex: Female

DRUGS (2)
  1. ZOFRAN [Suspect]
     Active Substance: ONDANSETRON HYDROCHLORIDE
     Indication: PRODUCT USED FOR UNKNOWN INDICATION
     Route: 042
  2. ZOFRAN [Suspect]
     Active Substance: ONDANSETRON HYDROCHLORIDE
     Indication: MORNING SICKNESS
     Dosage: 08 MG, Q6H, AS NEEDED (PRN)
     Route: 048
     Dates: start: 20110420, end: 20110901

REACTIONS (8)
  - Polyhydramnios [Unknown]
  - Injury [Unknown]
  - Emotional distress [Unknown]
  - Product use in unapproved indication [Unknown]
  - Illness [Unknown]
  - Product use issue [Unknown]
  - Premature delivery [Unknown]
  - Maternal exposure during pregnancy [Unknown]

NARRATIVE: CASE EVENT DATE: 20110904
